FAERS Safety Report 16970033 (Version 1)
Quarter: 2019Q4

REPORT INFORMATION
  Report Type: Spontaneous
  Country: US (occurrence: US)
  Receive Date: 20190911
  Receipt Date: 20190911
  Transmission Date: 20200122
  Serious: Yes (Hospitalization)
  Sender: FDA-Public Use
  Company Number: None

PATIENT
  Sex: Female

DRUGS (1)
  1. SUTENT [Suspect]
     Active Substance: SUNITINIB MALATE
     Indication: ILL-DEFINED DISORDER
     Route: 048
     Dates: start: 20190803

REACTIONS (3)
  - Confusional state [None]
  - Pain [None]
  - Nausea [None]
